FAERS Safety Report 4700650-9 (Version None)
Quarter: 2005Q2

REPORT INFORMATION
  Report Type: 
  Country: None (occurrence: None)
  Receive Date: 20050627
  Receipt Date: 20050620
  Transmission Date: 20051028
  Serious: Yes (Hospitalization, Other)
  Sender: FDA-Public Use
  Company Number: US-MERCK-0506USA03064

PATIENT
  Age: 34 Year
  Sex: Female

DRUGS (2)
  1. VIOXX [Suspect]
     Indication: FIBROMYALGIA
     Route: 048
     Dates: start: 20000601, end: 20010801
  2. VIOXX [Suspect]
     Route: 048
     Dates: start: 20000601, end: 20010801

REACTIONS (8)
  - ACNE CYSTIC [None]
  - ADVERSE EVENT [None]
  - ALOPECIA [None]
  - DRUG HYPERSENSITIVITY [None]
  - IRRITABLE BOWEL SYNDROME [None]
  - MENORRHAGIA [None]
  - PHOTOSENSITIVITY REACTION [None]
  - PULMONARY EMBOLISM [None]
